FAERS Safety Report 7070393-8 (Version None)
Quarter: 2010Q4

REPORT INFORMATION
  Report Type: 
  Country: None (occurrence: None)
  Receive Date: 20101029
  Receipt Date: 20101021
  Transmission Date: 20110411
  Serious: Yes (Hospitalization)
  Sender: FDA-Public Use
  Company Number: US-BIOGENIDEC-2010BI018384

PATIENT
  Age: 61 Year
  Sex: Female
  Weight: 55 kg

DRUGS (2)
  1. AVONEX [Suspect]
     Indication: MULTIPLE SCLEROSIS
     Route: 030
     Dates: start: 20061214, end: 20080829
  2. AVONEX [Suspect]
     Route: 030
     Dates: start: 20080922, end: 20100103

REACTIONS (2)
  - CHOLELITHIASIS [None]
  - SPINAL OPERATION [None]
